FAERS Safety Report 6131225-5 (Version None)
Quarter: 2009Q1

REPORT INFORMATION
  Report Type: 
  Country: None (occurrence: None)
  Receive Date: 20090325
  Receipt Date: 20080227
  Transmission Date: 20090719
  Serious: Yes (Other)
  Sender: FDA-Public Use
  Company Number: US-BRISTOL-MYERS SQUIBB COMPANY-13931027

PATIENT
  Age: 80 Year
  Sex: Male

DRUGS (2)
  1. ERBITUX [Suspect]
     Indication: HEAD AND NECK CANCER
     Dosage: WITH THE LOADING DOSE OF 680 MG, WEEKLY DOSE OF 425 MG FOR A TOTAL OF 7 WEEKS.DURATION 2 1/2 MONTHS
     Route: 042
     Dates: start: 20070927, end: 20071212
  2. RADIATION THERAPY [Suspect]
     Indication: HEAD AND NECK CANCER
     Dates: start: 20070927

REACTIONS (3)
  - ASTHENIA [None]
  - MUCOSAL INFLAMMATION [None]
  - RADIATION SKIN INJURY [None]
